FAERS Safety Report 9027921 (Version 1)
Quarter: 2013Q1

REPORT INFORMATION
  Report Type: Spontaneous
  Country: US (occurrence: None)
  Receive Date: 20130114
  Receipt Date: 20130114
  Transmission Date: 20140127
  Serious: No
  Sender: FDA-Public Use
  Company Number: None

PATIENT
  Age: 63 Year
  Sex: Male
  Weight: 76.39 kg

DRUGS (2)
  1. AFLIBERCEPT [Suspect]
     Dosage: EVERY 2 WEEKS
     Route: 042
     Dates: start: 20121113
  2. AFLIBERCEPT [Suspect]
     Dosage: EVERY 2 WEEKS
     Route: 042
     Dates: start: 20121127

REACTIONS (1)
  - Dyspnoea [None]
